FAERS Safety Report 6537258-9 (Version None)
Quarter: 2010Q1

REPORT INFORMATION
  Report Type: 
  Country: None (occurrence: None)
  Receive Date: 20100114
  Receipt Date: 20091230
  Transmission Date: 20100710
  Serious: No
  Sender: FDA-Public Use
  Company Number: US-ROXANE LABORATORIES, INC.-2009-RO-01247RO

PATIENT
  Sex: Female

DRUGS (5)
  1. LITHIUM CARBONATE [Suspect]
     Dosage: 600 MG
  2. LITHIUM [Suspect]
     Dosage: 600 MG
  3. RITALIN [Suspect]
     Dosage: 30 MG
  4. FAMVIR [Suspect]
     Indication: HERPES VIRUS INFECTION
  5. FAMVIR [Suspect]

REACTIONS (4)
  - FLAT AFFECT [None]
  - HERPES VIRUS INFECTION [None]
  - PRODUCT QUALITY ISSUE [None]
  - STRESS [None]
